FAERS Safety Report 8614646-8 (Version None)
Quarter: 2012Q3

REPORT INFORMATION
  Report Type: 
  Country: None (occurrence: None)
  Receive Date: 20120823
  Receipt Date: 20120822
  Transmission Date: 20120928
  Serious: Yes (Other)
  Sender: FDA-Public Use
  Company Number: PHHY2012DK051404

PATIENT
  Sex: Male

DRUGS (4)
  1. ZOLEDRONOC ACID [Suspect]
     Indication: OSTEOPOROSIS
     Dosage: 5 MG, /ONCE YEARLY, UNK
     Dates: start: 20120301
  2. MAGNESIUM [Concomitant]
     Dosage: UNK UKN, UNK
  3. VITAMIN D [Concomitant]
     Dosage: UNK UKN, UNK
  4. CALCIUM [Concomitant]
     Dosage: UNK UKN, UNK

REACTIONS (4)
  - ERYSIPELAS [None]
  - OEDEMA PERIPHERAL [None]
  - PRURITUS [None]
  - BLISTER [None]
